FAERS Safety Report 11647779 (Version 1)
Quarter: 2015Q4

REPORT INFORMATION
  Report Type: Spontaneous
  Country: JP (occurrence: JP)
  Receive Date: 20151021
  Receipt Date: 20151021
  Transmission Date: 20160304
  Serious: Yes (Other)
  Sender: FDA-Public Use
  Company Number: JP-ASPEN PHARMA TRADING LIMITED US-AS-2015-009093

PATIENT
  Age: 26 Year
  Sex: Female

DRUGS (2)
  1. MELPHALAN [Suspect]
     Active Substance: MELPHALAN
     Indication: ALLOGENIC BONE MARROW TRANSPLANTATION THERAPY
     Route: 065
  2. BUSULFAN [Suspect]
     Active Substance: BUSULFAN
     Indication: ALLOGENIC BONE MARROW TRANSPLANTATION THERAPY
     Route: 065

REACTIONS (2)
  - Cardiomyopathy [Unknown]
  - Benign neoplasm of thyroid gland [Unknown]

NARRATIVE: CASE EVENT DATE: 2011
